FAERS Safety Report 7371246-8 (Version None)
Quarter: 2011Q1

REPORT INFORMATION
  Report Type: 
  Country: None (occurrence: None)
  Receive Date: 20110316
  Receipt Date: 20110303
  Transmission Date: 20110831
  Serious: Yes (Hospitalization)
  Sender: FDA-Public Use
  Company Number: 028593

PATIENT
  Sex: Female
  Weight: 48 kg

DRUGS (5)
  1. CALCIUM [Concomitant]
  2. VITAMIN D [Concomitant]
  3. CIMZIA [Suspect]
     Indication: CROHN'S DISEASE
     Dosage: (400 MG 1X/2 WEEKS SUBCUTANEOUS)
     Route: 058
     Dates: start: 20100531
  4. FERROUS SULPHATE /00023503/ [Concomitant]
  5. PREDNISONE [Concomitant]

REACTIONS (3)
  - SYNOVIAL CYST [None]
  - JOINT SWELLING [None]
  - OEDEMA PERIPHERAL [None]
